FAERS Safety Report 9403206 (Version 1)
Quarter: 2013Q3

REPORT INFORMATION
  Report Type: Spontaneous
  Country: US (occurrence: None)
  Receive Date: 20130715
  Receipt Date: 20130715
  Transmission Date: 20140515
  Serious: Yes (Hospitalization)
  Sender: FDA-Public Use
  Company Number: None

PATIENT
  Age: 45 Year
  Sex: Female
  Weight: 71.8 kg

DRUGS (1)
  1. ONDANSETRON [Suspect]
     Dates: start: 20130103

REACTIONS (2)
  - Electrocardiogram QT prolonged [None]
  - Syncope [None]
